FAERS Safety Report 18459390 (Version 1)
Quarter: 2020Q4

REPORT INFORMATION
  Report Type: Report from Study
  Country: US (occurrence: US)
  Receive Date: 20201103
  Receipt Date: 20201103
  Transmission Date: 20210114
  Serious: Yes (Hospitalization)
  Sender: FDA-Public Use
  Company Number: US-DECIPHERA PHARMACEUTICALS LLC-2020-US-000196

PATIENT
  Age: 64 Year
  Sex: Male
  Weight: 87.3 kg

DRUGS (7)
  1. LACTULOSE. [Concomitant]
     Active Substance: LACTULOSE
     Indication: HYPERAMMONAEMIA
     Dosage: 20 G, QD
     Route: 048
     Dates: start: 20200318
  2. CHOLECALCIFEROL [Concomitant]
     Active Substance: CHOLECALCIFEROL
     Indication: SUPPLEMENTATION THERAPY
     Dosage: 5000 UNIT, QD
     Route: 048
  3. UBIDECARENONE W/VITAMIN E NOS [Concomitant]
     Indication: SUPPLEMENTATION THERAPY
     Dosage: 100 MG, QD
     Route: 048
  4. MULTIVITAMIN [Concomitant]
     Active Substance: VITAMINS
     Indication: SUPPLEMENTATION THERAPY
     Dosage: 1 CAPSULE, QD
     Route: 048
  5. DCC-2618 [Suspect]
     Active Substance: RIPRETINIB
     Indication: GASTROINTESTINAL STROMAL TUMOUR
     Dosage: 150 MILLIGRAM, QD
     Route: 048
     Dates: start: 20200327, end: 20200331
  6. LEVOTHYROXINE. [Concomitant]
     Active Substance: LEVOTHYROXINE
     Indication: HYPOTHYROIDISM
     Dosage: 112 MCG, QD
     Route: 048
     Dates: start: 20191220
  7. AMLODIPINE [Concomitant]
     Active Substance: AMLODIPINE BESYLATE
     Indication: HYPERTENSION
     Dosage: 10 MG, QD
     Route: 048
     Dates: start: 20190322

REACTIONS (2)
  - Metabolic encephalopathy [Recovered/Resolved]
  - Blood bilirubin increased [Recovering/Resolving]

NARRATIVE: CASE EVENT DATE: 20200401
